FAERS Safety Report 5945041-8 (Version None)
Quarter: 2008Q4

REPORT INFORMATION
  Report Type: 
  Country: None (occurrence: None)
  Receive Date: 20081107
  Receipt Date: 20081028
  Transmission Date: 20090506
  Serious: Yes (Other)
  Sender: FDA-Public Use
  Company Number: DE-PURDUE-DEU_2008_0004763

PATIENT
  Age: 81 Year
  Sex: Female

DRUGS (14)
  1. PANTOZOL                           /01263202/ [Concomitant]
  2. ISCOVER [Concomitant]
  3. LYRICA [Suspect]
  4. APONAL [Concomitant]
  5. MADOPAR                            /01585301/ [Concomitant]
  6. CARVEDILOL [Concomitant]
  7. LEVOTHYROXINE SODIUM [Concomitant]
  8. PRAVASTATIN [Concomitant]
  9. CORANGIN                           /00003201/ [Concomitant]
  10. SPASMO-URGENIN TC [Concomitant]
  11. DOXEPIN HCL [Concomitant]
  12. ANTIPSYCHOTICS [Suspect]
  13. TARGIN 20/10 MG RETARDTABLETTEN [Suspect]
     Indication: PAIN
     Dosage: 20 MG, BID
     Route: 048
  14. OXYGESIC [Suspect]
     Indication: PAIN
     Dosage: 60 MG, BID
     Route: 048

REACTIONS (3)
  - CONVULSION [None]
  - DRUG WITHDRAWAL SYNDROME [None]
  - GRAND MAL CONVULSION [None]
